FAERS Safety Report 24841463 (Version 1)
Quarter: 2025Q1

REPORT INFORMATION
  Report Type: Spontaneous
  Country: US (occurrence: US)
  Receive Date: 20250114
  Receipt Date: 20250114
  Transmission Date: 20250409
  Serious: No
  Sender: PFIZER
  Company Number: US-PFIZER INC-PV202500004374

PATIENT
  Age: 45 Year

DRUGS (2)
  1. VELSIPITY [Interacting]
     Active Substance: ETRASIMOD ARGININE
     Dosage: 2 MG, DAILY
  2. LABETALOL HYDROCHLORIDE [Interacting]
     Active Substance: LABETALOL HYDROCHLORIDE

REACTIONS (1)
  - Drug interaction [Unknown]
